FAERS Safety Report 9079603 (Version 1)
Quarter: 2013Q1

REPORT INFORMATION
  Report Type: Report from Study
  Country: US (occurrence: US)
  Receive Date: 20130130
  Receipt Date: 20130130
  Transmission Date: 20140127
  Serious: No
  Sender: FDA-Public Use
  Company Number: US-ABBOTT-12P-163-0953481-00

PATIENT
  Age: 50 None
  Sex: Female
  Weight: 49.94 kg

DRUGS (5)
  1. HUMIRA 40 MG/0.8 ML PEN [Suspect]
     Indication: CROHN^S DISEASE
     Dates: start: 201112
  2. PRILOSEC [Concomitant]
     Indication: GASTRITIS
  3. VITAMINS [Concomitant]
     Indication: VITAMIN SUPPLEMENTATION
  4. IRON [Concomitant]
     Indication: CROHN^S DISEASE
  5. BLINK [Concomitant]
     Indication: DRY EYE
     Route: 047

REACTIONS (21)
  - Skin haemorrhage [Not Recovered/Not Resolved]
  - Ulcer [Not Recovered/Not Resolved]
  - Nodule [Not Recovered/Not Resolved]
  - Ear pruritus [Not Recovered/Not Resolved]
  - Purulent discharge [Not Recovered/Not Resolved]
  - Wound [Not Recovered/Not Resolved]
  - Sinus disorder [Not Recovered/Not Resolved]
  - Therapeutic response unexpected [Not Recovered/Not Resolved]
  - Weight increased [Not Recovered/Not Resolved]
  - Rash [Not Recovered/Not Resolved]
  - Rash pruritic [Not Recovered/Not Resolved]
  - Dermatitis atopic [Unknown]
  - Dermatitis [Unknown]
  - Lichenification [Unknown]
  - Incorrect route of drug administration [Not Recovered/Not Resolved]
  - Wrong technique in drug usage process [Not Recovered/Not Resolved]
  - Nasal ulcer [Not Recovered/Not Resolved]
  - Otorrhoea [Not Recovered/Not Resolved]
  - Rash papular [Not Recovered/Not Resolved]
  - Rash erythematous [Not Recovered/Not Resolved]
  - Discomfort [Not Recovered/Not Resolved]
